FAERS Safety Report 9760103 (Version 1)
Quarter: 2013Q4

REPORT INFORMATION
  Report Type: Spontaneous
  Country: US (occurrence: US)
  Receive Date: 20131216
  Receipt Date: 20131216
  Transmission Date: 20140711
  Serious: No
  Sender: FDA-Public Use
  Company Number: US-BIOGENIDEC-2013BI101608

PATIENT
  Sex: Female
  Weight: 40 kg

DRUGS (11)
  1. TECFIDERA [Suspect]
     Indication: PRODUCT USED FOR UNKNOWN INDICATION
     Route: 048
  2. TECFIDERA [Suspect]
     Indication: PRODUCT USED FOR UNKNOWN INDICATION
     Route: 048
  3. SYNTHROID [Concomitant]
  4. PROVENTIL [Concomitant]
  5. ATENOLOL [Concomitant]
  6. ALBUTEROL [Concomitant]
  7. ADVAIR DISKU [Concomitant]
  8. SPIRIVA [Concomitant]
  9. FISH OIL [Concomitant]
  10. VIT D GUMMIE [Concomitant]
  11. PROLIA [Concomitant]

REACTIONS (1)
  - Nausea [Unknown]
